FAERS Safety Report 7549606-1 (Version None)
Quarter: 2011Q2

REPORT INFORMATION
  Report Type: 
  Country: None (occurrence: None)
  Receive Date: 20110615
  Receipt Date: 20110606
  Transmission Date: 20111010
  Serious: Yes (Hospitalization)
  Sender: FDA-Public Use
  Company Number: B0722011A

PATIENT
  Sex: Female

DRUGS (4)
  1. FOSRENOL [Concomitant]
     Indication: HYPERPARATHYROIDISM
     Route: 048
     Dates: start: 20100713
  2. CALCIUM CARBONATE [Concomitant]
     Indication: HYPERPARATHYROIDISM
     Route: 048
     Dates: start: 20100727
  3. VALTREX [Suspect]
     Indication: HERPES ZOSTER
     Dosage: 3000MG PER DAY
     Route: 048
     Dates: start: 20110521, end: 20110522
  4. CANDESARTAN CILEXETIL [Concomitant]
     Indication: HYPERTENSION
     Route: 048
     Dates: start: 20090109

REACTIONS (5)
  - TOXIC ENCEPHALOPATHY [None]
  - DELIRIUM [None]
  - DISORIENTATION [None]
  - ATAXIA [None]
  - ACCIDENTAL OVERDOSE [None]
